FAERS Safety Report 25104955 (Version 1)
Quarter: 2025Q1

REPORT INFORMATION
  Report Type: Spontaneous
  Country: EU (occurrence: None)
  Receive Date: 20250321
  Receipt Date: 20250321
  Transmission Date: 20250408
  Serious: Yes (Hospitalization)
  Sender: ETHYPHARM
  Company Number: None

PATIENT

DRUGS (5)
  1. BUPRENORPHINE HYDROCHLORIDE [Suspect]
     Active Substance: BUPRENORPHINE HYDROCHLORIDE
  2. COCAINE [Suspect]
     Active Substance: COCAINE
  3. LEVAMISOLE [Suspect]
     Active Substance: LEVAMISOLE
  4. ALCOHOL [Suspect]
     Active Substance: ALCOHOL
  5. COCAETHYLENE [Suspect]
     Active Substance: COCAETHYLENE

REACTIONS (6)
  - Substance use disorder [Unknown]
  - Drug use disorder [Unknown]
  - Coma [Recovered/Resolved]
  - Miosis [Recovered/Resolved]
  - Bradypnoea [Recovered/Resolved]
  - Oxygen saturation decreased [Recovered/Resolved]

NARRATIVE: CASE EVENT DATE: 20240909
